FAERS Safety Report 7438581-6 (Version None)
Quarter: 2011Q2

REPORT INFORMATION
  Report Type: 
  Country: None (occurrence: None)
  Receive Date: 20110426
  Receipt Date: 20110418
  Transmission Date: 20111010
  Serious: Yes (Hospitalization)
  Sender: FDA-Public Use
  Company Number: AT-AMGEN-AUTNI2011010804

PATIENT
  Age: 14 Year
  Sex: Female

DRUGS (3)
  1. PREDNISONE [Concomitant]
  2. DARBEPOETIN ALFA [Suspect]
     Indication: RENAL FAILURE CHRONIC
     Dosage: UNK UNK, QWK
     Route: 042
     Dates: start: 20110113
  3. CELLCEPT [Suspect]
     Dosage: 250 MG, UNK

REACTIONS (2)
  - THROMBOCYTOPENIA [None]
  - HAEMOLYSIS [None]
